FAERS Safety Report 23382937 (Version 1)
Quarter: 2024Q1

REPORT INFORMATION
  Report Type: Spontaneous
  Country: CN (occurrence: CN)
  Receive Date: 20240109
  Receipt Date: 20240109
  Transmission Date: 20240409
  Serious: Yes (Death)
  Sender: FDA-Public Use
  Company Number: CN-ABBVIE-5572793

PATIENT

DRUGS (3)
  1. CYCLOSPORINE [Suspect]
     Active Substance: CYCLOSPORINE
     Indication: Prophylaxis against transplant rejection
     Dosage: MAINTAINED TARGET LEVELS WERE 200 TO 300NG/ML, 150 TO 300NG/ML, AND 150 TO 250NG/ ML DURING THE F...
     Route: 048
  2. PREDNISONE [Concomitant]
     Active Substance: PREDNISONE
     Indication: Prophylaxis against transplant rejection
     Dosage: INITIATED AT 0.5 TO 1.0 MG/KG/DAY, TAPERED TO 0.3 TO 0.5 MG/KG/DAY AFTER 3 WEEKS, AND NO {0.1 MG/...
     Route: 065
  3. MYCOPHENOLATE MOFETIL [Concomitant]
     Active Substance: MYCOPHENOLATE MOFETIL
     Indication: Prophylaxis against transplant rejection
     Dosage: ON THE DAY OF HEART TRANSPLANT
     Route: 048

REACTIONS (1)
  - Infection [Fatal]
